FAERS Safety Report 8596550-7 (Version None)
Quarter: 2012Q3

REPORT INFORMATION
  Report Type: 
  Country: None (occurrence: None)
  Receive Date: 20120815
  Receipt Date: 20120810
  Transmission Date: 20120928
  Serious: Yes (Hospitalization)
  Sender: FDA-Public Use
  Company Number: AT-ROXANE LABORATORIES, INC.-2012-RO-01689RO

PATIENT
  Age: 39 Year
  Sex: Female

DRUGS (10)
  1. RISPERIDONE [Suspect]
     Indication: SCHIZOAFFECTIVE DISORDER
     Dosage: 4 MG
  2. MIRTAZAPINE [Suspect]
     Indication: ANTIDEPRESSANT THERAPY
     Dosage: 30 MG
  3. LORAZEPAM [Suspect]
     Dosage: 2.5 MG
  4. MIRTAZAPINE [Suspect]
     Dosage: 15 MG
  5. BISOPROLOL [Suspect]
     Dosage: 5 MG
  6. HALOPERIDOL [Suspect]
     Indication: SCHIZOAFFECTIVE DISORDER
  7. VENLAFAXINE [Suspect]
     Indication: ANTIDEPRESSANT THERAPY
     Dosage: 150 MG
  8. ARIPIPRAZOLE [Suspect]
     Indication: SCHIZOAFFECTIVE DISORDER
  9. LORAZEPAM [Suspect]
     Dosage: 4 MG
  10. VENLAFAXINE [Suspect]
     Dosage: 225 MG

REACTIONS (2)
  - SCHIZOPHRENIA [None]
  - GALACTORRHOEA [None]
